FAERS Safety Report 21059441 (Version 2)
Quarter: 2022Q3

REPORT INFORMATION
  Report Type: Report from Study
  Country: US (occurrence: US)
  Receive Date: 20220708
  Receipt Date: 20220915
  Transmission Date: 20221026
  Serious: Yes (Hospitalization, Other)
  Sender: FDA-Public Use
  Company Number: DE-ISA THerapeutics, B.V- 19US000013

PATIENT
  Age: 52 Year
  Sex: Male

DRUGS (7)
  1. INVESTIGATIONAL PRODUCT [Suspect]
     Active Substance: INVESTIGATIONAL PRODUCT
     Indication: Oropharyngeal cancer
     Dosage: 100 MCG/PEPTIDE
     Route: 058
     Dates: start: 20190904, end: 20191002
  2. CEMIPLIMAB [Suspect]
     Active Substance: CEMIPLIMAB
     Indication: Oropharyngeal cancer
     Dosage: 350 MILLIGRAM, Q3W
     Route: 042
     Dates: start: 20190911, end: 20191023
  3. TYLENOL [Concomitant]
     Active Substance: ACETAMINOPHEN
     Indication: Product use in unapproved indication
     Dosage: UNK
     Dates: start: 201903
  4. GABAPENTIN [Concomitant]
     Active Substance: GABAPENTIN
     Indication: Product used for unknown indication
     Dosage: UNK
     Dates: start: 201903
  5. IBUPROFEN                          /00109205/ [Concomitant]
     Indication: Pain
     Dosage: 400 MILLIGRAM, PRN
     Route: 048
     Dates: start: 201903
  6. REMERON [Concomitant]
     Active Substance: MIRTAZAPINE
     Indication: Depression
     Dosage: UNK
     Dates: start: 201906
  7. SENOKOT [Concomitant]
     Active Substance: SENNOSIDES
     Indication: Constipation
     Dosage: UNK
     Route: 048
     Dates: start: 201903

REACTIONS (1)
  - Hypersensitivity [Recovered/Resolved]

NARRATIVE: CASE EVENT DATE: 20191002
